FAERS Safety Report 9524247 (Version 3)
Quarter: 2013Q4

REPORT INFORMATION
  Report Type: Spontaneous
  Country: DK (occurrence: None)
  Receive Date: 20130912
  Receipt Date: 20131025
  Transmission Date: 20140711
  Serious: Yes (Hospitalization)
  Sender: FDA-Public Use
  Company Number: 2013MPI00525

PATIENT
  Age: 25 Year
  Sex: Female
  Weight: 61 kg

DRUGS (4)
  1. BRENTUXIMAB VEDOTIN [Suspect]
     Indication: HODGKIN^S DISEASE
     Dosage: QCYCLE
     Route: 042
     Dates: start: 20130625, end: 20130809
  2. DOXORUBICIN [Suspect]
     Indication: HODGKIN^S DISEASE
     Dosage: QCYCLE
     Route: 042
     Dates: start: 20130625, end: 20130809
  3. VINBLASTINE [Suspect]
     Indication: HODGKIN^S DISEASE
     Dosage: QCYCLE
     Route: 042
     Dates: start: 20130625, end: 20130809
  4. DACARBAZINE [Suspect]
     Indication: HODGKIN^S DISEASE
     Dosage: QCYCLE
     Route: 042
     Dates: start: 20130625, end: 20130809

REACTIONS (2)
  - Febrile neutropenia [None]
  - Pneumonia [None]
